FAERS Safety Report 14628121 (Version 1)
Quarter: 2018Q1

REPORT INFORMATION
  Report Type: Spontaneous
  Country: US (occurrence: US)
  Receive Date: 20180312
  Receipt Date: 20180312
  Transmission Date: 20180509
  Serious: No
  Sender: FDA-Public Use
  Company Number: US-ALLERGAN-1715243US

PATIENT
  Age: 65 Year
  Sex: Female

DRUGS (1)
  1. ESTRACE [Suspect]
     Active Substance: ESTRADIOL
     Indication: ATROPHIC VULVOVAGINITIS
     Dosage: UNK, BI-WEEKLY
     Route: 067

REACTIONS (6)
  - Inappropriate schedule of drug administration [Unknown]
  - Breast engorgement [Unknown]
  - Vulvovaginal burning sensation [Not Recovered/Not Resolved]
  - Erythema [Unknown]
  - Wrong technique in product usage process [Unknown]
  - Erythema [Not Recovered/Not Resolved]

NARRATIVE: CASE EVENT DATE: 20170312
